FAERS Safety Report 11354181 (Version 1)
Quarter: 2015Q3

REPORT INFORMATION
  Report Type: Spontaneous
  Country: US (occurrence: US)
  Receive Date: 20150807
  Receipt Date: 20150807
  Transmission Date: 20151125
  Serious: No
  Sender: FDA-Public Use
  Company Number: US-JNJFOC-20141208021

PATIENT
  Age: 61 Year
  Sex: Female
  Weight: 55.79 kg

DRUGS (1)
  1. SUDAFED [Suspect]
     Active Substance: PSEUDOEPHEDRINE HYDROCHLORIDE
     Indication: SINUS CONGESTION
     Dosage: ONCE IN A 24 HOUR PERIOD
     Route: 048
     Dates: start: 20100331, end: 20141207

REACTIONS (1)
  - Expired product administered [Unknown]
